FAERS Safety Report 19069913 (Version 3)
Quarter: 2021Q2

REPORT INFORMATION
  Report Type: Report from Study
  Country: US (occurrence: US)
  Receive Date: 20210329
  Receipt Date: 20210407
  Transmission Date: 20210717
  Serious: No
  Sender: FDA-Public Use
  Company Number: NVSC2021US066769

PATIENT
  Age: 14 Year
  Sex: Male

DRUGS (1)
  1. ILARIS [Suspect]
     Active Substance: CANAKINUMAB
     Indication: JUVENILE IDIOPATHIC ARTHRITIS
     Dosage: 300 MG, Q3W
     Route: 058
     Dates: start: 20191102

REACTIONS (3)
  - Joint swelling [Unknown]
  - Inappropriate schedule of product administration [Unknown]
  - Joint effusion [Unknown]

NARRATIVE: CASE EVENT DATE: 20210226
